FAERS Safety Report 6525490-X (Version None)
Quarter: 2010Q1

REPORT INFORMATION
  Report Type: 
  Country: None (occurrence: None)
  Receive Date: 20100104
  Receipt Date: 20091221
  Transmission Date: 20100710
  Serious: Yes (Other)
  Sender: FDA-Public Use
  Company Number: US-PFIZER INC-2009312644

PATIENT
  Sex: Female

DRUGS (10)
  1. CELEBREX [Suspect]
  2. LIPITOR [Suspect]
  3. PENICILLIN VK [Suspect]
  4. TRAZODONE HCL [Suspect]
  5. AMIODARONE [Suspect]
  6. DULCOLAX [Suspect]
  7. CIPROFLOXACIN [Suspect]
  8. LODINE XL [Suspect]
  9. MECLOMEN [Suspect]
  10. ZOCOR [Suspect]

REACTIONS (2)
  - HYPERSENSITIVITY [None]
  - MYOCARDIAL INFARCTION [None]
